FAERS Safety Report 4875591-7 (Version None)
Quarter: 2006Q1

REPORT INFORMATION
  Report Type: 
  Country: None (occurrence: None)
  Receive Date: 20060109
  Receipt Date: 20060104
  Transmission Date: 20060701
  Serious: Yes (Life-Threatening)
  Sender: FDA-Public Use
  Company Number: FR-ROCHE-430539

PATIENT
  Age: 44 Year
  Sex: Male
  Weight: 68 kg

DRUGS (10)
  1. DACLIZUMAB [Suspect]
     Route: 042
     Dates: start: 20050722
  2. MYCOPHENOLATE MOFETIL [Suspect]
     Route: 065
     Dates: start: 20050723, end: 20051108
  3. MYCOPHENOLATE MOFETIL [Suspect]
     Route: 065
     Dates: start: 20051108
  4. SIROLIMUS [Suspect]
     Route: 048
     Dates: start: 20051028, end: 20051122
  5. SIROLIMUS [Suspect]
     Route: 048
     Dates: start: 20051122
  6. CORTICOSTEROIDS [Suspect]
     Route: 048
     Dates: start: 20050825
  7. BACTRIM [Concomitant]
     Dates: start: 20050722
  8. NEXIUM [Concomitant]
     Dates: start: 20050722
  9. 1 CONCOMITANT SUSPECTED DRUG [Concomitant]
     Dates: start: 20050722
  10. PHOSPHONEUROS [Concomitant]
     Dates: start: 20050723

REACTIONS (1)
  - NEUTROPENIA [None]
